FAERS Safety Report 17498385 (Version 1)
Quarter: 2020Q1

REPORT INFORMATION
  Report Type: Spontaneous
  Country: US (occurrence: US)
  Receive Date: 20200304
  Receipt Date: 20200304
  Transmission Date: 20200409
  Serious: Yes (Hospitalization)
  Sender: FDA-Public Use
  Company Number: US-ACTELION-A-NJ2020-200653

PATIENT
  Age: 79 Year
  Sex: Female
  Weight: 59.86 kg

DRUGS (3)
  1. ADEMPAS [Concomitant]
     Active Substance: RIOCIGUAT
  2. OPSUMIT [Suspect]
     Active Substance: MACITENTAN
     Indication: PULMONARY HYPERTENSION
     Dosage: 10 MG, QD
     Route: 048
     Dates: start: 20020101
  3. ELIQUIS [Concomitant]
     Active Substance: APIXABAN

REACTIONS (7)
  - Blood pressure decreased [Unknown]
  - Fluid overload [Unknown]
  - Anaemia [Unknown]
  - Blood iron decreased [Unknown]
  - Fatigue [Unknown]
  - Haemoglobin decreased [Unknown]
  - Peripheral swelling [Not Recovered/Not Resolved]

NARRATIVE: CASE EVENT DATE: 20200105
